FAERS Safety Report 9789278 (Version 1)
Quarter: 2013Q4

REPORT INFORMATION
  Report Type: Spontaneous
  Country: DK (occurrence: DK)
  Receive Date: 20131231
  Receipt Date: 20131231
  Transmission Date: 20140711
  Serious: Yes (Other)
  Sender: FDA-Public Use
  Company Number: DK-ACTAVIS-2013-23562

PATIENT
  Age: 41 Year
  Sex: Female

DRUGS (6)
  1. VINCRISTINE (UNKNOWN) [Suspect]
     Indication: EWING^S SARCOMA
     Dosage: 2 MG, UNKNOWN; SIX CYCLES AT THREE-WEEK INTERVALS
     Route: 065
  2. DOXORUBICIN (UNKNOWN) [Suspect]
     Indication: EWING^S SARCOMA
     Dosage: 40 MG/ 3 DAYS, THEN REDUCED
     Route: 065
  3. ETOPOSIDE (UNKNOWN) [Suspect]
     Indication: EWING^S SARCOMA
     Dosage: 300 MG/ 3 DAYS; THEN REDUCED
     Route: 065
  4. PREDNISOLONE (UNKNOWN) [Suspect]
     Indication: PRODUCT USED FOR UNKNOWN INDICATION
     Dosage: UNK
     Route: 065
  5. MIRTAZAPINE (UNKNOWN) [Suspect]
     Indication: PRODUCT USED FOR UNKNOWN INDICATION
     Dosage: UNK
     Route: 065
  6. IFOSFAMIDE [Suspect]
     Indication: EWING^S SARCOMA
     Dosage: 6 G/ 3 DAYS;FOR FOUR CYCLES
     Route: 065

REACTIONS (4)
  - Bone marrow failure [Unknown]
  - Renal impairment [Unknown]
  - Oral candidiasis [Unknown]
  - Mucosal inflammation [Unknown]
